FAERS Safety Report 12804140 (Version 4)
Quarter: 2017Q2

REPORT INFORMATION
  Report Type: Spontaneous
  Country: US (occurrence: US)
  Receive Date: 20161003
  Receipt Date: 20170404
  Transmission Date: 20170830
  Serious: Yes (Hospitalization, Other)
  Sender: FDA-Public Use
  Company Number: US-PFIZER INC-2016456906

PATIENT
  Age: 45 Year
  Sex: Female

DRUGS (4)
  1. METHYLPREDNISOLONE SODIUM SUCCINATE. [Suspect]
     Active Substance: METHYLPREDNISOLONE SODIUM SUCCINATE
     Indication: BACK PAIN
     Dosage: 80 MG, SINGLE
     Route: 008
  2. LIDOCAINE. [Concomitant]
     Active Substance: LIDOCAINE
     Indication: BACK PAIN
  3. LIDOCAINE. [Concomitant]
     Active Substance: LIDOCAINE
     Indication: LOCAL ANAESTHESIA
     Dosage: TWO MILLILITERS OF A 0.5%
     Route: 058
  4. BETAMETHASONE. [Suspect]
     Active Substance: BETAMETHASONE
     Indication: BACK PAIN
     Dosage: 12 MG, SINGLE
     Route: 008

REACTIONS (4)
  - Product use issue [Recovering/Resolving]
  - Meningitis chemical [Recovered/Resolved]
  - Pneumocephalus [Recovering/Resolving]
  - Incorrect route of drug administration [Recovering/Resolving]
